FAERS Safety Report 24000699 (Version 3)
Quarter: 2024Q4

REPORT INFORMATION
  Report Type: Spontaneous
  Country: US (occurrence: US)
  Receive Date: 20240621
  Receipt Date: 20241118
  Transmission Date: 20250114
  Serious: No
  Sender: PFIZER
  Company Number: US-PFIZER INC-202400197674

PATIENT
  Age: 14 Year
  Sex: Male

DRUGS (1)
  1. LITFULO [Suspect]
     Active Substance: RITLECITINIB TOSYLATE
     Indication: Alopecia totalis
     Dosage: 50 MG, DAILY (TAKE ONE CAPSULE BY MOUTH DAILY)
     Route: 048

REACTIONS (1)
  - Pruritus [Unknown]
